FAERS Safety Report 12343515 (Version 1)
Quarter: 2016Q2

REPORT INFORMATION
  Report Type: Spontaneous
  Country: US (occurrence: US)
  Receive Date: 20160506
  Receipt Date: 20160506
  Transmission Date: 20160815
  Serious: No
  Sender: FDA-Public Use
  Company Number: US-GLAXOSMITHKLINE-US2016057139

PATIENT
  Sex: Female

DRUGS (1)
  1. IMITREX [Suspect]
     Active Substance: SUMATRIPTAN SUCCINATE
     Indication: MIGRAINE
     Dosage: 100 MG, PRN
     Route: 048

REACTIONS (6)
  - Injury [Recovering/Resolving]
  - Inability to afford medication [Unknown]
  - Diarrhoea [Unknown]
  - Product packaging issue [Recovering/Resolving]
  - Vomiting [Unknown]
  - Drug ineffective [Recovering/Resolving]
